FAERS Safety Report 21776509 (Version 1)
Quarter: 2022Q4

REPORT INFORMATION
  Report Type: Spontaneous
  Country: US (occurrence: US)
  Receive Date: 20221226
  Receipt Date: 20221226
  Transmission Date: 20230113
  Serious: No
  Sender: FDA-Public Use
  Company Number: US-SA-SAC20221212001415

PATIENT
  Age: 38 Year
  Sex: Male

DRUGS (8)
  1. DUPIXENT [Suspect]
     Active Substance: DUPILUMAB
     Dosage: 600 MG, 1X
     Route: 058
  2. DIPROLENE [Concomitant]
     Active Substance: BETAMETHASONE DIPROPIONATE
     Dosage: UNK
     Route: 061
  3. DEVICE [Concomitant]
     Active Substance: DEVICE
     Dosage: UNK
     Route: 061
  4. HALOBETASOL PROPIONATE [Concomitant]
     Active Substance: HALOBETASOL PROPIONATE
     Indication: Rash
     Dosage: BID X BIM
     Route: 061
  5. AVAR [Concomitant]
     Active Substance: SULFACETAMIDE SODIUM\SULFUR
     Dosage: QD
     Route: 061
  6. MEDROL [Concomitant]
     Active Substance: METHYLPREDNISOLONE
     Dosage: UNK, PRN
     Route: 048
  7. NEOSALUS [Concomitant]
     Dosage: BID
     Route: 061
  8. METRONIDAZOLE [Concomitant]
     Active Substance: METRONIDAZOLE
     Dosage: UNK
     Route: 061

REACTIONS (1)
  - Eczema [Unknown]
